FAERS Safety Report 5121106-8 (Version None)
Quarter: 2006Q4

REPORT INFORMATION
  Report Type: 
  Country: None (occurrence: None)
  Receive Date: 20061002
  Receipt Date: 20060920
  Transmission Date: 20070319
  Serious: Yes (Hospitalization, Other)
  Sender: FDA-Public Use
  Company Number: 2006113137

PATIENT
  Age: 82 Year
  Sex: Male

DRUGS (2)
  1. NIFEDIPINE [Suspect]
     Indication: HYPERTENSION
     Dosage: ORAL
     Route: 048
  2. PLENDIL [Suspect]
     Indication: HYPERTENSION
     Dosage: ORAL
     Route: 048

REACTIONS (3)
  - FALL [None]
  - HYPOTENSION [None]
  - ORTHOSTATIC INTOLERANCE [None]
